FAERS Safety Report 4322945-3 (Version None)
Quarter: 2004Q1

REPORT INFORMATION
  Report Type: 
  Country: None (occurrence: None)
  Receive Date: 20040322
  Receipt Date: 20030430
  Transmission Date: 20041129
  Serious: Yes (Hospitalization)
  Sender: FDA-Public Use
  Company Number: 2003-04-4305

PATIENT

DRUGS (1)
  1. EULEXIN [Suspect]
     Dosage: ORAL
     Route: 048

REACTIONS (1)
  - BLOOD LACTATE DEHYDROGENASE INCREASED [None]
